FAERS Safety Report 9391209 (Version 1)
Quarter: 2013Q3

REPORT INFORMATION
  Report Type: Report from Study
  Country: PL (occurrence: PL)
  Receive Date: 20130709
  Receipt Date: 20130709
  Transmission Date: 20140515
  Serious: Yes (Life-Threatening, Hospitalization)
  Sender: FDA-Public Use
  Company Number: PL-SANOFI-AVENTIS-2013SA068110

PATIENT
  Age: 53 Year
  Sex: Female

DRUGS (9)
  1. DOCETAXEL [Suspect]
     Indication: BREAST CANCER
     Route: 042
     Dates: start: 20130110
  2. BLINDED THERAPY [Suspect]
     Indication: BREAST CANCER
     Route: 042
     Dates: start: 20130110
  3. BLINDED THERAPY [Suspect]
     Indication: BREAST CANCER
     Dosage: FORM: INFUSION SOLUTION
     Route: 042
     Dates: start: 20130516
  4. TRASTUZUMAB [Suspect]
     Indication: BREAST CANCER
     Dosage: FORM: INFUSION SOLUTION
     Route: 042
     Dates: start: 20130110
  5. TRASTUZUMAB [Suspect]
     Indication: BREAST CANCER
     Dosage: FORM: INFUSION SOLUTION
     Route: 042
     Dates: start: 20130516
  6. DEXAMETHASONE [Concomitant]
     Dates: start: 20130109, end: 20130112
  7. ONDANSETRON [Concomitant]
     Dates: start: 20130110, end: 20130110
  8. LETROX [Concomitant]
     Dosage: 50
     Dates: start: 2008
  9. METOPROLOL [Concomitant]

REACTIONS (2)
  - Hospitalisation [Recovered/Resolved]
  - Febrile neutropenia [Unknown]
